FAERS Safety Report 4765270-9 (Version None)
Quarter: 2005Q3

REPORT INFORMATION
  Report Type: 
  Country: None (occurrence: None)
  Receive Date: 20050909
  Receipt Date: 20031001
  Transmission Date: 20060218
  Serious: Yes (Hospitalization)
  Sender: FDA-Public Use
  Company Number: US-MERCK-0310USA00201

PATIENT
  Age: 64 Year
  Sex: Female
  Weight: 75 kg

DRUGS (9)
  1. VIOXX [Suspect]
     Indication: OSTEOARTHRITIS
     Route: 048
     Dates: start: 19990101, end: 20030901
  2. LIPITOR [Concomitant]
     Indication: BLOOD CHOLESTEROL INCREASED
     Route: 065
     Dates: start: 19970101, end: 20041101
  3. LIPITOR [Concomitant]
     Indication: BLOOD TRIGLYCERIDES INCREASED
     Route: 065
     Dates: start: 19970101, end: 20041101
  4. LASIX [Concomitant]
     Indication: OEDEMA
     Route: 065
     Dates: start: 19990101, end: 20040101
  5. LASIX [Concomitant]
     Indication: SWELLING
     Route: 065
     Dates: start: 19990101, end: 20040101
  6. DIOVAN [Concomitant]
     Indication: HYPERTENSION
     Route: 065
     Dates: start: 19960101
  7. ASPIRIN [Concomitant]
     Route: 065
     Dates: start: 20030501
  8. PREMARIN [Concomitant]
     Indication: MENOPAUSE
     Route: 065
     Dates: start: 19900101, end: 20040801
  9. DARVOCET-N 100 [Concomitant]
     Indication: ARTHRITIS
     Route: 065
     Dates: start: 19900101, end: 20040101

REACTIONS (29)
  - ATRIOVENTRICULAR BLOCK [None]
  - BLOOD TRIGLYCERIDES INCREASED [None]
  - CORNEAL DISORDER [None]
  - CORONARY ARTERY DISEASE [None]
  - CORONARY ARTERY OCCLUSION [None]
  - DEPRESSION [None]
  - FATIGUE [None]
  - GASTRIC ULCER [None]
  - GASTRIC ULCER HAEMORRHAGE [None]
  - GASTROINTESTINAL HAEMORRHAGE [None]
  - GASTROINTESTINAL ULCER HAEMORRHAGE [None]
  - HAEMATEMESIS [None]
  - HAEMATOCHEZIA [None]
  - HAEMORRHOIDS [None]
  - HOT FLUSH [None]
  - INCREASED TENDENCY TO BRUISE [None]
  - INSOMNIA [None]
  - INTESTINAL PERFORATION [None]
  - JOINT SWELLING [None]
  - MALAISE [None]
  - NOCTURIA [None]
  - ORTHOSTATIC HYPOTENSION [None]
  - PHOTOSENSITIVITY REACTION [None]
  - POST-TRAUMATIC STRESS DISORDER [None]
  - RENAL FAILURE ACUTE [None]
  - SNORING [None]
  - SYNCOPE [None]
  - THYROID DISORDER [None]
  - VARICOSE VEIN [None]
